FAERS Safety Report 9298495 (Version 1)
Quarter: 2013Q1

REPORT INFORMATION
  Report Type: Spontaneous
  Country: US (occurrence: None)
  Receive Date: 20121227
  Receipt Date: 20121227
  Transmission Date: 20140127
  Serious: Yes (Death)
  Sender: FDA-Public Use
  Company Number: PHEH2012US022581

PATIENT
  Age: 87 Year
  Sex: Male

DRUGS (2)
  1. AFINITOR [Suspect]
     Indication: RENAL CANCER
     Route: 048
     Dates: start: 20121004
  2. AFINITOR [Suspect]
     Indication: URINARY TRACT NEOPLASM
     Route: 048
     Dates: start: 20121004

REACTIONS (2)
  - Neoplasm [None]
  - Malignant neoplasm progression [None]
